FAERS Safety Report 10391894 (Version 3)
Quarter: 2015Q1

REPORT INFORMATION
  Report Type: Spontaneous
  Country: SE (occurrence: SE)
  Receive Date: 20140819
  Receipt Date: 20150216
  Transmission Date: 20150720
  Serious: Yes (Other)
  Sender: FDA-Public Use
  Company Number: PHHY2014SE099411

PATIENT
  Age: 69 Year
  Sex: Female
  Weight: 56 kg

DRUGS (32)
  1. CIPRALEX [Concomitant]
     Active Substance: ESCITALOPRAM OXALATE
     Indication: PRODUCT USED FOR UNKNOWN INDICATION
     Dosage: 1 DF, DAILY IN THE MORNING
     Route: 065
     Dates: start: 20131108
  2. XERODENT [Concomitant]
     Indication: DRY MOUTH
     Dosage: IF NECESSARY, 1 LOZANGE  UP TO 6 TIMES DAILY
     Route: 065
     Dates: start: 20130304
  3. ERY-MAX [Concomitant]
     Active Substance: ERYTHROMYCIN
     Indication: GASTROINTESTINAL MOTILITY DISORDER
     Dosage: 50 MG 30 MIN PRIOR TO MAIN DIET, THREE TIMES DAILY
     Route: 065
     Dates: start: 20140512, end: 20140623
  4. PANTOLOC ^BYK GULDEN^ [Concomitant]
     Indication: GASTRIC DISORDER
     Dosage: 40 MG, QID (1 TABLET PER DAY IN MORNING)
     Route: 065
     Dates: start: 20120124
  5. STILNOCT [Concomitant]
     Active Substance: ZOLPIDEM TARTRATE
     Indication: PRODUCT USED FOR UNKNOWN INDICATION
     Dosage: 1 DF, (1 TABLET AT LATE NIGHT PRIOR TO SEEP), NO HIGHER DOSE
     Route: 065
     Dates: start: 20100212
  6. GAVISCON [Concomitant]
     Active Substance: ALUMINUM HYDROXIDE\MAGNESIUM CARBONATE
     Indication: PRODUCT USED FOR UNKNOWN INDICATION
     Dosage: IF NECESSARY ACCORDING TO PRESCRIPTION
     Route: 065
     Dates: start: 20130719
  7. ALVEDON [Concomitant]
     Active Substance: ACETAMINOPHEN
     Indication: PAIN
     Dosage: 1-2 TABLETES 3 TO 4 TIMES A DAY IF NESSESARY, MAX 8 TABLETS PER DAY
     Route: 065
     Dates: start: 20080708
  8. ATARAX [Concomitant]
     Active Substance: HYDROXYZINE\HYDROXYZINE HYDROCHLORIDE
     Indication: PRURITUS
     Dosage: 1-5 TABLET IF NECESSARY, MAX 10 PER DAY
     Route: 065
     Dates: start: 20131111
  9. TEARS NATURALE [Concomitant]
     Indication: LACRIMAL DISORDER
     Dosage: 3 MG/ML PLUS 1 MG/ML, DROPS WHEN NECESSARY
     Route: 065
     Dates: start: 20120308
  10. ACLASTA [Suspect]
     Active Substance: ZOLEDRONIC ACID
     Indication: OSTEOPOROSIS POSTMENOPAUSAL
     Dosage: 5 MG, UNK
     Route: 042
     Dates: start: 20140623
  11. FLUNITRAZEPAM [Concomitant]
     Active Substance: FLUNITRAZEPAM
     Indication: SLEEP DISORDER
     Dosage: 1 DF, (ONE TABLET PRIOR TO SLEEP)
     Route: 065
     Dates: start: 20120418
  12. SALICYLVASELIN 2% [Concomitant]
     Indication: PRODUCT USED FOR UNKNOWN INDICATION
     Dosage: 4-5 TIMES DAILY IF REQUIRED
     Route: 065
     Dates: start: 20140512
  13. NASONEX [Concomitant]
     Active Substance: MOMETASONE FUROATE
     Indication: PRODUCT USED FOR UNKNOWN INDICATION
     Dosage: 1 DOSE TWICE DAILY TO EACH NOSTRIL
     Route: 045
     Dates: start: 20140516
  14. GAVISCON [Concomitant]
     Active Substance: ALUMINUM HYDROXIDE\MAGNESIUM CARBONATE
     Indication: PRODUCT USED FOR UNKNOWN INDICATION
  15. MOVICOL [Concomitant]
     Active Substance: POLYETHYLENE GLYCOL 3350\POTASSIUM CHLORIDE\SODIUM BICARBONATE\SODIUM CHLORIDE
     Indication: CONSTIPATION
     Dosage: 1/2 TO 1DOSES 1 TO 3 TIMES DAILY, TAILOR DOSE AFTER HOW MUCH NEED TO KEEP STOMACH RUNNING.
     Route: 065
     Dates: start: 20131007
  16. ZANTAC [Concomitant]
     Active Substance: RANITIDINE HYDROCHLORIDE
     Indication: GASTRIC DISORDER
     Dosage: 1 DF, IN TE EVENING
     Route: 065
     Dates: start: 20070807
  17. HIRUDOID [Concomitant]
     Active Substance: GLYCOSAMINOGLYCANS
     Indication: CONTUSION
     Dosage: 3-4 TIMES DAILY
     Route: 061
     Dates: start: 20121212
  18. SALIVA SUBSTITUTE [Concomitant]
     Indication: SALIVARY GLAND DISORDER
     Dosage: 1 TO 2 SPRAYS SEVERAL TIMES PER DAY
     Route: 065
     Dates: start: 20140401
  19. FENURIL [Concomitant]
     Indication: DRY SKIN
     Dosage: IF NECESSARY
     Route: 065
     Dates: start: 20091208
  20. LEVAXIN [Concomitant]
     Active Substance: LEVOTHYROXINE SODIUM
     Indication: PRODUCT USED FOR UNKNOWN INDICATION
     Dosage: 1 DF, DAILY IN THE MORNING
     Route: 065
     Dates: start: 20100104
  21. SOBRIL [Concomitant]
     Active Substance: OXAZEPAM
     Indication: PRODUCT USED FOR UNKNOWN INDICATION
     Dosage: 1 DF, TID (COULD NOT REPLACE WITH GENERIC)
     Route: 065
     Dates: start: 20111104
  22. PROPYLESS [Concomitant]
     Indication: DRY SKIN
     Dosage: 3 TO 4 TIMES DAILY IF NECESSARY
     Route: 003
     Dates: start: 20130513
  23. PROPYLESS [Concomitant]
     Indication: PRODUCT USED FOR UNKNOWN INDICATION
  24. ATORVASTATIN ACTAVIS//ATORVASTATIN CALCIUM [Concomitant]
     Indication: BLOOD CHOLESTEROL
     Dosage: 1 DF, IN THE EVENING
     Route: 065
     Dates: start: 20120618
  25. GAVISCON [Concomitant]
     Active Substance: ALUMINUM HYDROXIDE\MAGNESIUM CARBONATE
     Indication: PRODUCT USED FOR UNKNOWN INDICATION
     Dosage: 1 DF, IF NECESSARY
     Route: 065
     Dates: start: 20130729
  26. NITROLINGUAL [Concomitant]
     Active Substance: NITROGLYCERIN
     Indication: ANGINA PECTORIS
     Dosage: 0.4 MG, PER DOSE (1-2 PUFF IF NECCESSARY)
     Route: 060
     Dates: start: 2003
  27. HIRUDOID [Concomitant]
     Active Substance: GLYCOSAMINOGLYCANS
     Indication: ANGIOPATHY
  28. NORSPAN [Concomitant]
     Active Substance: BUPRENORPHINE
     Indication: PRODUCT USED FOR UNKNOWN INDICATION
     Dosage: SET PATCH FOR ONCE EVERY WEEK
     Route: 065
     Dates: start: 20140703
  29. TROMBYL [Concomitant]
     Active Substance: ASPIRIN
     Indication: COAGULOPATHY
     Dosage: 1 DF, DAILY IN THE MORNING
     Route: 065
     Dates: start: 20100201
  30. ATORVASTATIN ACTAVIS//ATORVASTATIN CALCIUM [Concomitant]
     Indication: ANGIOPATHY
  31. OVESTERIN [Concomitant]
     Active Substance: ESTRIOL
     Indication: MUCOUS MEMBRANE DISORDER
     Dosage: TWO TIMES/WEEK
     Route: 065
     Dates: start: 20131205
  32. MINIDERM//GLYCEROL [Concomitant]
     Indication: DRY SKIN
     Dosage: MORNING AND STARTED EVERY NIGHT
     Route: 065
     Dates: start: 20070131

REACTIONS (27)
  - Muscle tightness [Unknown]
  - Arthralgia [Unknown]
  - Dyspepsia [Not Recovered/Not Resolved]
  - Dysgeusia [Unknown]
  - Sleep disorder [Unknown]
  - Laziness [Unknown]
  - Weight decreased [Not Recovered/Not Resolved]
  - Urine output decreased [Unknown]
  - Syncope [Unknown]
  - Pain [Unknown]
  - Tremor [Unknown]
  - Concomitant disease aggravated [Unknown]
  - Micturition urgency [Unknown]
  - Chest pain [Recovered/Resolved]
  - Gastritis [Unknown]
  - Abdominal pain [Not Recovered/Not Resolved]
  - Memory impairment [Unknown]
  - Oral pain [Unknown]
  - Implant site pain [Unknown]
  - Mouth swelling [Unknown]
  - Disturbance in attention [Unknown]
  - Dry mouth [Not Recovered/Not Resolved]
  - Pruritus [Unknown]
  - Eating disorder [Unknown]
  - Pyrexia [Recovered/Resolved]
  - Myalgia [Unknown]
  - Fatigue [Unknown]

NARRATIVE: CASE EVENT DATE: 20140626
